FAERS Safety Report 5779815-3 (Version None)
Quarter: 2008Q2

REPORT INFORMATION
  Report Type: 
  Country: None (occurrence: None)
  Receive Date: 20080618
  Receipt Date: 20080605
  Transmission Date: 20081010
  Serious: Yes (Death)
  Sender: FDA-Public Use
  Company Number: WAES 0806DNK00007

PATIENT

DRUGS (2)
  1. COZAAR [Suspect]
     Dosage: 100 MG, DAILY; PO
     Route: 048
  2. TAB PLACEBO (UNSPECIFIED) [Suspect]
     Dosage: PO
     Route: 048

REACTIONS (1)
  - DEATH [None]
